FAERS Safety Report 5641086-6 (Version None)
Quarter: 2008Q1

REPORT INFORMATION
  Report Type: 
  Country: None (occurrence: None)
  Receive Date: 20080227
  Receipt Date: 20071008
  Transmission Date: 20080703
  Serious: No
  Sender: FDA-Public Use
  Company Number: A0318978A

PATIENT
  Age: 57 Year
  Sex: Female

DRUGS (2)
  1. NICORETTE [Suspect]
     Indication: SMOKING CESSATION THERAPY
     Dosage: 12GUM PER DAY
     Route: 002
  2. NICORETTE [Suspect]
     Indication: SMOKING CESSATION THERAPY
     Route: 002

REACTIONS (4)
  - GLOSSODYNIA [None]
  - INTENTIONAL DRUG MISUSE [None]
  - OROPHARYNGEAL BLISTERING [None]
  - PALPITATIONS [None]
